FAERS Safety Report 4987619-4 (Version None)
Quarter: 2006Q2

REPORT INFORMATION
  Report Type: 
  Country: None (occurrence: None)
  Receive Date: 20060428
  Receipt Date: 20060428
  Transmission Date: 20061013
  Serious: No
  Sender: FDA-Public Use
  Company Number: None

PATIENT
  Sex: Male

DRUGS (1)
  1. MAGNUM KNOTLESS IMPLANT [Suspect]
     Dates: start: 20060119

REACTIONS (3)
  - DEVICE CONNECTION ISSUE [None]
  - SHOULDER PAIN [None]
  - SURGICAL PROCEDURE REPEATED [None]
